FAERS Safety Report 4595609-9 (Version None)
Quarter: 2005Q1

REPORT INFORMATION
  Report Type: 
  Country: None (occurrence: None)
  Receive Date: 20050224
  Receipt Date: 20050215
  Transmission Date: 20050727
  Serious: Yes (Death)
  Sender: FDA-Public Use
  Company Number: F01200500206

PATIENT
  Age: 61 Year
  Sex: Male

DRUGS (8)
  1. (OXALIPLATIN) - SOLUTION - 138 MG [Suspect]
     Indication: COLORECTAL CANCER METASTATIC
     Dosage: 138 MG Q2W
     Route: 042
  2. FLUOROURACIL [Suspect]
     Dosage: 650 MG IV BOLUS AND 9850 IV CONTINUOUS INFUSION, Q2W
     Route: 042
  3. (LEUCOVORIN) - SOLUTION - 324 MG [Suspect]
     Dosage: 324 MG Q2W
     Route: 042
  4. (BEVACIZUMAB OR PLACEBO) - SOLUTION - 279 MG [Suspect]
     Dosage: 279 MG Q2W
     Route: 042
  5. M-ESLON (MORPHINE SULFATE) [Concomitant]
  6. NEXIUM [Concomitant]
  7. PREDNISOLONE [Concomitant]
  8. MAXERAN (METOCLOPRAMIDE HYDROCHLORIDE) [Concomitant]

REACTIONS (2)
  - PNEUMONIA [None]
  - SEPSIS [None]
